FAERS Safety Report 24270189 (Version 1)
Quarter: 2024Q3

REPORT INFORMATION
  Report Type: Spontaneous
  Country: US (occurrence: None)
  Receive Date: 20240103
  Receipt Date: 20240103
  Transmission Date: 20241016
  Serious: No
  Sender: Public
  Company Number: None

PATIENT
  Sex: Male

DRUGS (2)
  1. REMICADE [Suspect]
     Active Substance: INFLIXIMAB
     Indication: Colitis ulcerative
     Dosage: OTHER STRENGTH : 100MG/VL;?OTHER FREQUENCY : EVERY 6 WEEKS;?
     Route: 042
     Dates: start: 202104
  2. NORMAL SALINE FLUSH (10ML) [Concomitant]

REACTIONS (1)
  - Drug ineffective [None]
